FAERS Safety Report 9285435 (Version 2)
Quarter: 2013Q2

REPORT INFORMATION
  Report Type: Spontaneous
  Country: US (occurrence: US)
  Receive Date: 20130513
  Receipt Date: 20130611
  Transmission Date: 20140414
  Serious: Yes (Other)
  Sender: FDA-Public Use
  Company Number: US-PFIZER INC-2013145176

PATIENT
  Age: 73 Year
  Sex: Female
  Weight: 82.54 kg

DRUGS (6)
  1. LYRICA [Suspect]
     Indication: DIABETIC NEUROPATHY
     Dosage: 150 MG, 2X/DAY
  2. FUROSEMIDE [Suspect]
     Indication: RENAL DISORDER
     Dosage: 40 MG, 1X/DAY
  3. FUROSEMIDE [Suspect]
     Indication: DYSURIA
  4. INSULIN [Concomitant]
     Indication: DIABETES MELLITUS
     Dosage: UNK
  5. LORTAB [Concomitant]
     Indication: DIABETIC NEUROPATHY
     Dosage: UNK
  6. CYMBALTA [Concomitant]
     Dosage: 60 MG, UNK

REACTIONS (4)
  - Renal impairment [Not Recovered/Not Resolved]
  - Back pain [Not Recovered/Not Resolved]
  - Micturition disorder [Not Recovered/Not Resolved]
  - Drug ineffective [Unknown]
